FAERS Safety Report 6847336-2 (Version None)
Quarter: 2010Q3

REPORT INFORMATION
  Report Type: 
  Country: None (occurrence: None)
  Receive Date: 20100716
  Receipt Date: 20100625
  Transmission Date: 20110219
  Serious: Yes (Other)
  Sender: FDA-Public Use
  Company Number: GB-BAYER-201026298GPV

PATIENT
  Sex: Female

DRUGS (1)
  1. MIRENA [Suspect]
     Indication: PRODUCT USED FOR UNKNOWN INDICATION
     Route: 015
     Dates: start: 20100219

REACTIONS (5)
  - CHRONIC FATIGUE SYNDROME [None]
  - DIZZINESS [None]
  - HYPERVENTILATION [None]
  - INCREASED APPETITE [None]
  - VISION BLURRED [None]
